FAERS Safety Report 6706607-0 (Version None)
Quarter: 2010Q2

REPORT INFORMATION
  Report Type: 
  Country: None (occurrence: None)
  Receive Date: 20100423
  Receipt Date: 20100106
  Transmission Date: 20101027
  Serious: No
  Sender: FDA-Public Use
  Company Number: ALL1-2009-03912

PATIENT
  Age: 46 Year
  Sex: Male
  Weight: 117 kg

DRUGS (1)
  1. VYVANSE [Suspect]
     Indication: ATTENTION DEFICIT/HYPERACTIVITY DISORDER
     Dosage: 30 MG, 1X/DAY:QD, ORAL
     Route: 048
     Dates: start: 20091116, end: 20091123

REACTIONS (3)
  - EMOTIONAL DISTRESS [None]
  - IRRITABILITY [None]
  - MUSCLE TWITCHING [None]
